FAERS Safety Report 6497950-1 (Version None)
Quarter: 2009Q4

REPORT INFORMATION
  Report Type: 
  Country: None (occurrence: None)
  Receive Date: 20091215
  Receipt Date: 20091203
  Transmission Date: 20100525
  Serious: Yes (Other)
  Sender: FDA-Public Use
  Company Number: DE-PFIZER INC-2009299769

PATIENT
  Sex: Female

DRUGS (2)
  1. AZITHROMYCIN [Suspect]
  2. OFLOXACIN [Suspect]

REACTIONS (2)
  - ALOPECIA [None]
  - HYPERSENSITIVITY [None]
